FAERS Safety Report 5833683-X (Version None)
Quarter: 2008Q3

REPORT INFORMATION
  Report Type: 
  Country: None (occurrence: None)
  Receive Date: 20080804
  Receipt Date: 20080804
  Transmission Date: 20090109
  Serious: Yes (Other)
  Sender: FDA-Public Use
  Company Number: None

PATIENT
  Age: 40 Year
  Sex: Female
  Weight: 65.318 kg

DRUGS (2)
  1. LEVAQUIN [Suspect]
     Indication: PNEUMONIA
     Dosage: IV 750 MG ONCE DAILY IV DRIP
     Route: 041
     Dates: start: 20070924, end: 20071001
  2. CIPRO [Suspect]
     Indication: URINARY TRACT INFECTION
     Dosage: 500 MG TWICE DAILY PO
     Route: 048
     Dates: start: 20080214, end: 20080219

REACTIONS (29)
  - AGITATION [None]
  - ANXIETY [None]
  - CHONDROPATHY [None]
  - COLOUR BLINDNESS [None]
  - CONFUSIONAL STATE [None]
  - DEPERSONALISATION [None]
  - DRY EYE [None]
  - DYSPNOEA [None]
  - EAR DISCOMFORT [None]
  - HALLUCINATION [None]
  - HEADACHE [None]
  - HYPERTENSION [None]
  - ILL-DEFINED DISORDER [None]
  - INSOMNIA [None]
  - JOINT CREPITATION [None]
  - MEMORY IMPAIRMENT [None]
  - MIDDLE INSOMNIA [None]
  - MUSCULAR WEAKNESS [None]
  - NERVOUS SYSTEM DISORDER [None]
  - NEUROPATHY PERIPHERAL [None]
  - NIGHTMARE [None]
  - PAIN IN EXTREMITY [None]
  - PALPITATIONS [None]
  - QUALITY OF LIFE DECREASED [None]
  - TREMOR [None]
  - URINARY RETENTION [None]
  - URINARY TRACT INFECTION [None]
  - VISION BLURRED [None]
  - WEIGHT DECREASED [None]
